FAERS Safety Report 9812758 (Version 5)
Quarter: 2016Q4

REPORT INFORMATION
  Report Type: Spontaneous
  Country: US (occurrence: US)
  Receive Date: 20140113
  Receipt Date: 20161122
  Transmission Date: 20170207
  Serious: Yes (Other)
  Sender: FDA-Public Use
  Company Number: US-009507513-1401USA001372

PATIENT
  Sex: Male
  Weight: 63.39 kg

DRUGS (2)
  1. PROPECIA [Suspect]
     Active Substance: FINASTERIDE
     Indication: ANDROGENETIC ALOPECIA
     Dosage: 1 MG, UNK
     Route: 048
     Dates: start: 201002, end: 20110227
  2. PROPECIA [Suspect]
     Active Substance: FINASTERIDE
     Indication: ALOPECIA

REACTIONS (20)
  - Lethargy [Unknown]
  - Anxiety [Unknown]
  - Somnolence [Unknown]
  - Adverse event [Unknown]
  - Apathy [Unknown]
  - Libido decreased [Unknown]
  - Sensory loss [Unknown]
  - Intraocular pressure increased [Unknown]
  - Emotional poverty [Unknown]
  - Depression [Unknown]
  - Sexual dysfunction [Unknown]
  - Myalgia [Unknown]
  - Aphasia [Unknown]
  - Cerebral disorder [Unknown]
  - Weight increased [Unknown]
  - Emotional disorder [Unknown]
  - Rash [Unknown]
  - Fatigue [Unknown]
  - Semen volume decreased [Unknown]
  - Erectile dysfunction [Unknown]

NARRATIVE: CASE EVENT DATE: 2011
